FAERS Safety Report 9185462 (Version 1)
Quarter: 2012Q4

REPORT INFORMATION
  Report Type: 
  Country: AT (occurrence: AT)
  Receive Date: 20121101
  Receipt Date: 20121101
  Transmission Date: 20130627
  Serious: Yes (Life-Threatening)
  Sender: FDA-Public Use
  Company Number: AT-PFIZER INC-2012269735

PATIENT
  Age: 41 Year
  Sex: Male

DRUGS (12)
  1. ECALTA [Suspect]
     Indication: CANDIDA KRUSEI INFECTION
     Dosage: 200 mg, UNK
     Route: 042
     Dates: start: 20121002, end: 20121002
  2. DIFLUCAN [Concomitant]
     Dosage: UNK
     Route: 042
     Dates: end: 20121002
  3. MEROPENEM [Concomitant]
     Dosage: UNK
     Route: 042
     Dates: end: 20121002
  4. FENTANYL [Concomitant]
     Route: 042
  5. HYDROCORTISONE [Concomitant]
     Route: 042
  6. DORMICUM [Concomitant]
     Route: 042
  7. ESMERON [Concomitant]
     Route: 042
  8. NOVORAPID [Concomitant]
     Route: 042
  9. CLONIDINE [Concomitant]
     Route: 042
  10. PANTOLOC [Concomitant]
     Dosage: 40 mg, 2x/day
     Route: 042
  11. HEPA-MERZ [Concomitant]
  12. PASPERTIN [Concomitant]
     Dosage: 1 DF, 3x/day
     Route: 042

REACTIONS (4)
  - Blood pressure decreased [Unknown]
  - Bradycardia [Unknown]
  - Resuscitation [Unknown]
  - Haemodynamic instability [Unknown]
